FAERS Safety Report 9441632 (Version 1)
Quarter: 2013Q3

REPORT INFORMATION
  Report Type: Report from Study
  Country: US (occurrence: US)
  Receive Date: 20130806
  Receipt Date: 20130806
  Transmission Date: 20140515
  Serious: Yes (Other)
  Sender: FDA-Public Use
  Company Number: US-ROCHE-1253942

PATIENT
  Age: 60 Year
  Sex: Female

DRUGS (3)
  1. AVASTIN [Suspect]
     Indication: BREAST CANCER
     Route: 042
     Dates: start: 20080105, end: 20120401
  2. XELODA [Suspect]
     Indication: BREAST CANCER
     Route: 048
     Dates: start: 20080105, end: 20120401
  3. GEMZAR [Concomitant]
     Indication: BREAST CANCER
     Route: 042
     Dates: start: 20120816, end: 20121101

REACTIONS (6)
  - Ascites [Not Recovered/Not Resolved]
  - Renal failure [Unknown]
  - Neoplasm malignant [Recovered/Resolved]
  - Fluid retention [Not Recovered/Not Resolved]
  - Peritoneal disorder [Not Recovered/Not Resolved]
  - Gastrointestinal disorder [Unknown]
